FAERS Safety Report 8839672 (Version 3)
Quarter: 2012Q4

REPORT INFORMATION
  Report Type: 
  Country: US (occurrence: US)
  Receive Date: 20121015
  Receipt Date: 20121219
  Transmission Date: 20130627
  Serious: Yes (Other)
  Sender: FDA-Public Use
  Company Number: PHEH2012US020013

PATIENT
  Age: 45 Year
  Sex: Male
  Weight: 63.49 kg

DRUGS (6)
  1. GILENYA [Suspect]
     Indication: MULTIPLE SCLEROSIS
     Dosage: 0.5 mg, QD
     Route: 048
     Dates: start: 20120814, end: 20121007
  2. BACLOFEN [Concomitant]
     Indication: MUSCLE SPASTICITY
     Dosage: 0.5 mg, QD
     Route: 048
     Dates: start: 2007
  3. DANTROLENE [Concomitant]
     Dosage: 25 mg, TID
     Route: 048
     Dates: start: 20120815
  4. IBUPROFEN [Concomitant]
     Dosage: UNK UKN, PRN
     Route: 048
  5. B 12 [Concomitant]
     Dosage: UNK UKN, QD
  6. VITAMIN D [Concomitant]
     Dosage: UNK UKN, UNK

REACTIONS (11)
  - Macular degeneration [Not Recovered/Not Resolved]
  - Multiple sclerosis [Unknown]
  - Blepharospasm [Unknown]
  - Nystagmus [Unknown]
  - Ophthalmoplegia [Unknown]
  - Visual impairment [Not Recovered/Not Resolved]
  - Diplopia [Recovering/Resolving]
  - Vision blurred [Unknown]
  - Eye movement disorder [Recovered/Resolved]
  - Gaze palsy [Recovering/Resolving]
  - Ataxia [Recovering/Resolving]
